FAERS Safety Report 9271585 (Version 1)
Quarter: 2013Q2

REPORT INFORMATION
  Report Type: Spontaneous
  Country: BR (occurrence: BR)
  Receive Date: 20130506
  Receipt Date: 20130506
  Transmission Date: 20140414
  Serious: Yes (Hospitalization, Other)
  Sender: FDA-Public Use
  Company Number: BR-SANOFI-AVENTIS-2013SA043190

PATIENT
  Sex: Female
  Weight: 81 kg

DRUGS (9)
  1. LANTUS [Suspect]
     Indication: TYPE 1 DIABETES MELLITUS
     Dosage: ABOUT 9 YEARS AGO
     Route: 058
  2. AUTOPEN 24 [Concomitant]
     Indication: DEVICE THERAPY
     Dosage: ABOUT 9-YEARS AGO
  3. OMEPRAZOLE [Concomitant]
     Indication: GASTRIC DISORDER
     Dosage: ABOUT 2-YEARS AGO
     Route: 048
  4. CALCIUM CARBONATE/VITAMIN D NOS [Concomitant]
     Indication: OSTEOPENIA
     Dosage: ABOUT 10-YEARS AGO
     Route: 048
  5. NEURONTIN [Concomitant]
     Indication: DIABETIC NEUROPATHY
     Dosage: ABOUT 10-YEARS AGO
     Route: 048
  6. ATORVASTATIN [Concomitant]
     Indication: BLOOD CHOLESTEROL
     Dosage: ABOUT 1-YEAR AGO
     Route: 048
  7. AMLODIPINE BESILATE [Concomitant]
     Dosage: ABOUT 10-YEARS AGO
     Route: 048
  8. HYDROCHLOROTHIAZIDE/LOSARTAN POTASSIUM [Concomitant]
     Indication: HYPERTENSION
     Dosage: ABOUT 10-YEARS AGO
     Route: 048
  9. NOVORAPID [Concomitant]
     Indication: DIABETES MELLITUS INADEQUATE CONTROL
     Dosage: ABOUT 6-YEARS AGO
     Route: 058

REACTIONS (9)
  - Breast cancer [Unknown]
  - Fall [Unknown]
  - Rib fracture [Not Recovered/Not Resolved]
  - Pain [Not Recovered/Not Resolved]
  - Traumatic lung injury [Not Recovered/Not Resolved]
  - Hyperglycaemia [Not Recovered/Not Resolved]
  - Fatigue [Not Recovered/Not Resolved]
  - Thirst [Not Recovered/Not Resolved]
  - Pollakiuria [Not Recovered/Not Resolved]
